FAERS Safety Report 5756664-3 (Version None)
Quarter: 2008Q2

REPORT INFORMATION
  Report Type: 
  Country: None (occurrence: None)
  Receive Date: 20080603
  Receipt Date: 20080526
  Transmission Date: 20081010
  Serious: Yes (Hospitalization)
  Sender: FDA-Public Use
  Company Number: JP-BAYER-200810585BYL

PATIENT
  Age: 67 Year
  Sex: Female

DRUGS (6)
  1. ADALAT [Suspect]
     Indication: HYPERTENSION
     Route: 048
     Dates: start: 20071205, end: 20071222
  2. ADALAT [Suspect]
     Dosage: TOTAL DAILY DOSE: 20 MG  UNIT DOSE: 20 MG
     Route: 048
     Dates: start: 20080214, end: 20080313
  3. ALFAROL [Concomitant]
     Indication: OSTEOPOROSIS
     Route: 048
     Dates: start: 20080214, end: 20080313
  4. LASIX [Concomitant]
     Indication: OEDEMA
     Dosage: UNIT DOSE: 40 MG
     Route: 048
     Dates: start: 20080214, end: 20080313
  5. NITRODERM [Concomitant]
     Indication: ANGINA PECTORIS
     Route: 062
     Dates: start: 20080214, end: 20080313
  6. POTASSIUM L-ASPARTATE [Concomitant]
     Indication: HYPOKALAEMIA
     Route: 048
     Dates: start: 20080214, end: 20080313

REACTIONS (3)
  - PETECHIAE [None]
  - PLATELET COUNT DECREASED [None]
  - RENAL FAILURE CHRONIC [None]
